FAERS Safety Report 9879837 (Version 2)
Quarter: 2014Q1

REPORT INFORMATION
  Report Type: Spontaneous
  Country: HU (occurrence: DE)
  Receive Date: 20140206
  Receipt Date: 20140226
  Transmission Date: 20141002
  Serious: Yes (Hospitalization)
  Sender: FDA-Public Use
  Company Number: HU-WATSON-2014-02538

PATIENT
  Age: 42 Year
  Sex: Female

DRUGS (2)
  1. FIBRISTAL (UNKNOWN) [Suspect]
     Indication: ANAEMIA
     Dosage: 5 MG, DAILY
     Route: 048
     Dates: start: 20131012, end: 20131228
  2. FIBRISTAL (UNKNOWN) [Suspect]
     Indication: UTERINE LEIOMYOMA

REACTIONS (3)
  - Suicidal ideation [Not Recovered/Not Resolved]
  - Mental disorder [Not Recovered/Not Resolved]
  - Depression [Not Recovered/Not Resolved]
